FAERS Safety Report 10631776 (Version 7)
Quarter: 2015Q1

REPORT INFORMATION
  Report Type: Spontaneous
  Country: US (occurrence: US)
  Receive Date: 20141205
  Receipt Date: 20150223
  Transmission Date: 20150720
  Serious: Yes (Hospitalization, Other)
  Sender: FDA-Public Use
  Company Number: US-UNITED THERAPEUTICS-UNT-2014-008212

PATIENT
  Age: 38 Year
  Sex: Female
  Weight: 65.99 kg

DRUGS (7)
  1. REMODULIN [Suspect]
     Active Substance: TREPROSTINIL
     Dosage: 0.0191 ?G/KG, CONTINUING
     Route: 041
     Dates: start: 20140919
  2. XARELTO [Concomitant]
     Active Substance: RIVAROXABAN
     Indication: PRODUCT USED FOR UNKNOWN INDICATION
  3. ADCIRCA [Concomitant]
     Active Substance: TADALAFIL
     Indication: PRODUCT USED FOR UNKNOWN INDICATION
  4. REMODULIN [Suspect]
     Active Substance: TREPROSTINIL
     Indication: PULMONARY ARTERIAL HYPERTENSION
     Dosage: 0.014 ?G/KG/MIN, CONTINUING
     Route: 041
     Dates: start: 20140918
  5. REMODULIN [Suspect]
     Active Substance: TREPROSTINIL
     Dosage: 0.0401 ?G/KG, CONTINUING
     Route: 041
     Dates: start: 20140919
  6. REMODULIN [Suspect]
     Active Substance: TREPROSTINIL
     Dosage: 0.017 ?G/KG, CONTINUING
     Route: 041
     Dates: start: 20140919
  7. LETAIRIS [Concomitant]
     Active Substance: AMBRISENTAN
     Indication: PRODUCT USED FOR UNKNOWN INDICATION

REACTIONS (16)
  - Asthma [Unknown]
  - Fatigue [Unknown]
  - Weight increased [Unknown]
  - Drug dose omission [Unknown]
  - Hypercoagulation [Unknown]
  - Fluid overload [Unknown]
  - Headache [Unknown]
  - Injection site discharge [Unknown]
  - Infection [Unknown]
  - Pulmonary arterial hypertension [Unknown]
  - Pain in extremity [Unknown]
  - Thrombosis in device [Unknown]
  - Dyspnoea [Unknown]
  - Vascular insufficiency [Unknown]
  - Device leakage [Unknown]
  - Oedema peripheral [Unknown]

NARRATIVE: CASE EVENT DATE: 2014
